FAERS Safety Report 8837918 (Version 5)
Quarter: 2013Q2

REPORT INFORMATION
  Report Type: Spontaneous
  Country: DK (occurrence: DK)
  Receive Date: 20121012
  Receipt Date: 20130424
  Transmission Date: 20140414
  Serious: Yes (Other)
  Sender: FDA-Public Use
  Company Number: DK-PFIZER INC-2012247131

PATIENT
  Age: 42 Year
  Sex: Female

DRUGS (3)
  1. CLINDAMYCIN HCL [Suspect]
     Indication: STAPHYLOCOCCAL INFECTION
     Dosage: 300 MG, 3X/DAY
     Route: 048
     Dates: start: 20070609, end: 20070616
  2. VIBRADOX [Suspect]
     Indication: BORRELIA INFECTION
     Dosage: STARTED UP WITH VIBRADOX 200 MG ONE DAY AND SUBSEQUENTLY 100 MG
     Route: 048
     Dates: start: 20070614, end: 20070614
  3. VIBRADOX [Suspect]
     Dosage: 100 MG, 1X/DAY
     Route: 048
     Dates: start: 20070615, end: 20070615

REACTIONS (16)
  - Angioedema [Recovering/Resolving]
  - Swelling face [Recovering/Resolving]
  - Local swelling [Recovering/Resolving]
  - Local swelling [Recovering/Resolving]
  - Rash generalised [Recovered/Resolved]
  - Oedema mouth [Recovering/Resolving]
  - Lip swelling [Recovering/Resolving]
  - Hypoaesthesia [Recovering/Resolving]
  - Paraesthesia [Recovered/Resolved]
  - Neurological symptom [Recovering/Resolving]
  - Urticaria [Recovered/Resolved]
  - Throat irritation [Unknown]
  - Cough [Unknown]
  - Abdominal pain [Unknown]
  - Headache [Recovered/Resolved]
  - Malaise [Unknown]
